FAERS Safety Report 20878019 (Version 3)
Quarter: 2022Q2

REPORT INFORMATION
  Report Type: Spontaneous
  Country: US (occurrence: US)
  Receive Date: 20220526
  Receipt Date: 20220623
  Transmission Date: 20220720
  Serious: Yes (Other)
  Sender: FDA-Public Use
  Company Number: US-PFIZER INC-202200738956

PATIENT
  Age: 74 Year
  Sex: Female
  Weight: 61.23 kg

DRUGS (3)
  1. SULFASALAZINE [Suspect]
     Active Substance: SULFASALAZINE
     Indication: Rheumatoid arthritis
     Dosage: 500 MG, 2X/DAY (WITH FOOD)
     Route: 048
     Dates: start: 202204
  2. SULFASALAZINE [Suspect]
     Active Substance: SULFASALAZINE
     Dosage: 1500 MG, DAILY  (3 TABLETS A DAY 2 IN MORNING AND 1 AT NIGHT)
     Route: 048
     Dates: start: 20220514
  3. PREDNISONE [Concomitant]
     Active Substance: PREDNISONE
     Dosage: 5 MG, 1X/DAY
     Route: 048

REACTIONS (6)
  - Abdominal pain upper [Recovered/Resolved]
  - Drug ineffective [Not Recovered/Not Resolved]
  - Headache [Recovered/Resolved]
  - Poor quality product administered [Recovering/Resolving]
  - Insomnia [Recovering/Resolving]
  - Product coating issue [Unknown]

NARRATIVE: CASE EVENT DATE: 20220515
